FAERS Safety Report 9336192 (Version 2)
Quarter: 2013Q3

REPORT INFORMATION
  Report Type: Spontaneous
  Country: JP (occurrence: JP)
  Receive Date: 20130607
  Receipt Date: 20130821
  Transmission Date: 20140515
  Serious: Yes (Hospitalization, Other)
  Sender: FDA-Public Use
  Company Number: JP-009507513-1306JPN000881

PATIENT
  Age: 65 Year
  Sex: Male
  Weight: 66 kg

DRUGS (1)
  1. PEGINTRON [Suspect]
     Indication: CHRONIC HEPATITIS C
     Dosage: 100 MICROGRAM ONCE WEEKLY
     Route: 058
     Dates: start: 20120614, end: 20130509

REACTIONS (2)
  - Skin ulcer [Not Recovered/Not Resolved]
  - Cellulitis [Recovered/Resolved]
